FAERS Safety Report 5702381-5 (Version None)
Quarter: 2008Q2

REPORT INFORMATION
  Report Type: 
  Country: None (occurrence: None)
  Receive Date: 20080408
  Receipt Date: 20080325
  Transmission Date: 20081010
  Serious: Yes (Other)
  Sender: FDA-Public Use
  Company Number: 100#03#2008-01774

PATIENT
  Sex: Female

DRUGS (5)
  1. TRAMADOL HCL [Suspect]
     Indication: PAIN
  2. GABAPENTIN [Suspect]
     Indication: NEURALGIA
  3. HYPERICUM PERFORATUM (HYPERICUM PERFORATUM) [Suspect]
     Indication: DRUG USE FOR UNKNOWN INDICATION
  4. MEPERIDINE HYDROCHLORIDE [Suspect]
     Indication: PAIN
     Dosage: 3 DOSES, INTRAVENOUS
     Route: 042
  5. ACETAMINOPHEN [Concomitant]

REACTIONS (5)
  - DRUG INTERACTION [None]
  - HALLUCINATION, VISUAL [None]
  - LOWER LIMB FRACTURE [None]
  - ROAD TRAFFIC ACCIDENT [None]
  - SEROTONIN SYNDROME [None]
